FAERS Safety Report 7546814-0 (Version None)
Quarter: 2011Q2

REPORT INFORMATION
  Report Type: 
  Country: None (occurrence: None)
  Receive Date: 20110614
  Receipt Date: 20110603
  Transmission Date: 20111010
  Serious: Yes (Hospitalization)
  Sender: FDA-Public Use
  Company Number: US-ROCHE-779131

PATIENT
  Sex: Male
  Weight: 100.8 kg

DRUGS (18)
  1. BEVACIZUMAB [Suspect]
     Indication: OESOPHAGEAL CANCER METASTATIC
     Route: 065
     Dates: start: 20110517, end: 20110517
  2. EMLA [Concomitant]
  3. BEVACIZUMAB [Suspect]
     Route: 065
     Dates: start: 20110607
  4. PERCOCET [Concomitant]
  5. CAPECITABINE [Suspect]
     Indication: OESOPHAGEAL CANCER METASTATIC
     Dosage: DOSE FREQUENCY:1 PER 2 WEEKS ON AND 1 OFF
     Route: 065
     Dates: start: 20110517, end: 20110523
  6. OXALIPLATIN [Suspect]
     Indication: OESOPHAGEAL CANCER METASTATIC
     Route: 065
     Dates: start: 20110517, end: 20110517
  7. ACTOS [Concomitant]
  8. XANAX [Concomitant]
  9. GLYBURIDE [Concomitant]
  10. LOMOTIL [Concomitant]
  11. PRILOSEC [Concomitant]
  12. COMPAZINE [Concomitant]
     Dosage: REPORTED AS COMPAZINO
  13. CRESTOR [Concomitant]
  14. DECADRON [Concomitant]
  15. LANTUS [Concomitant]
     Dosage: REPORTED AS LANTUS SOLOSTAR PEN
  16. ZOFRAN [Concomitant]
  17. TRASTUZUMAB [Suspect]
     Indication: OESOPHAGEAL CANCER METASTATIC
     Route: 065
     Dates: start: 20110510, end: 20110517
  18. LISINOPRIL [Concomitant]

REACTIONS (4)
  - CHEST PAIN [None]
  - DYSPEPSIA [None]
  - HYPERTENSION [None]
  - PULMONARY EMBOLISM [None]
